FAERS Safety Report 11344433 (Version 1)
Quarter: 2015Q3

REPORT INFORMATION
  Report Type: Spontaneous
  Country: None (occurrence: None)
  Receive Date: 20150805
  Receipt Date: 20150805
  Transmission Date: 20151125
  Serious: Yes (Disabling)
  Sender: FDA-Public Use
  Company Number: None

PATIENT
  Age: 25 Year
  Sex: Female
  Weight: 56.7 kg

DRUGS (3)
  1. MIRENA [Suspect]
     Active Substance: LEVONORGESTREL
  2. DIFFERIN [Concomitant]
     Active Substance: ADAPALENE
  3. WELLBUTRIN [Concomitant]
     Active Substance: BUPROPION HYDROCHLORIDE

REACTIONS (6)
  - Alopecia [None]
  - Acne cystic [None]
  - Abdominal distension [None]
  - Mood swings [None]
  - Weight increased [None]
  - Depression [None]

NARRATIVE: CASE EVENT DATE: 20150804
